FAERS Safety Report 12238802 (Version 1)
Quarter: 2016Q2

REPORT INFORMATION
  Report Type: Spontaneous
  Country: US (occurrence: US)
  Receive Date: 20160405
  Receipt Date: 20160405
  Transmission Date: 20160815
  Serious: Yes (Death)
  Sender: FDA-Public Use
  Company Number: US-FRI-1000083675

PATIENT
  Age: 83 Year
  Sex: Male

DRUGS (1)
  1. NAMENDA XR [Suspect]
     Active Substance: MEMANTINE HYDROCHLORIDE
     Route: 048
     Dates: end: 20160326

REACTIONS (1)
  - Death [Fatal]

NARRATIVE: CASE EVENT DATE: 20160326
